FAERS Safety Report 6228539-7 (Version None)
Quarter: 2009Q2

REPORT INFORMATION
  Report Type: 
  Country: None (occurrence: None)
  Receive Date: 20090612
  Receipt Date: 20090603
  Transmission Date: 20091009
  Serious: Yes (Other)
  Sender: FDA-Public Use
  Company Number: PHHY2009JP19305

PATIENT
  Age: 46 Year
  Sex: Female

DRUGS (3)
  1. NEORAL [Suspect]
     Indication: PSORIATIC ARTHROPATHY
     Dosage: 250 MG/DAY
     Route: 048
     Dates: start: 20090501, end: 20090518
  2. ALMARL [Concomitant]
  3. NORVASC [Concomitant]

REACTIONS (1)
  - CYSTITIS HAEMORRHAGIC [None]
